FAERS Safety Report 10430825 (Version 2)
Quarter: 2014Q3

REPORT INFORMATION
  Report Type: Spontaneous
  Country: US (occurrence: None)
  Receive Date: 20140902
  Receipt Date: 20140915
  Transmission Date: 20150326
  Serious: Yes (Hospitalization)
  Sender: FDA-Public Use
  Company Number: 20140573

PATIENT
  Age: 9 Month
  Sex: Female

DRUGS (1)
  1. FOSPHENYTOIN SODIUM. [Suspect]
     Active Substance: FOSPHENYTOIN SODIUM
     Indication: CONVULSION
     Route: 042

REACTIONS (8)
  - Hypoxia [None]
  - Accidental overdose [None]
  - Cardiogenic shock [None]
  - Cardiomyopathy [None]
  - Acute respiratory failure [None]
  - General physical health deterioration [None]
  - Tachycardia [None]
  - Myocardial depression [None]
